FAERS Safety Report 6193844-X (Version None)
Quarter: 2009Q2

REPORT INFORMATION
  Report Type: 
  Country: None (occurrence: None)
  Receive Date: 20090518
  Receipt Date: 20090506
  Transmission Date: 20091009
  Serious: Yes (Other)
  Sender: FDA-Public Use
  Company Number: DE-PFIZER INC-2009202370

PATIENT
  Age: 41 Year

DRUGS (4)
  1. LYRICA [Suspect]
     Indication: DEPRESSION
     Dosage: 50 MG, 2X/DAY
     Route: 048
     Dates: start: 20090420
  2. LYRICA [Suspect]
     Indication: ANXIETY
     Dosage: 25 MG, 2X/DAY
     Route: 048
     Dates: end: 20090420
  3. TRIMIPRAMINE [Concomitant]
     Indication: DEPRESSION
     Dosage: UNK
  4. SORTIS [Concomitant]
     Dosage: UNK

REACTIONS (3)
  - BRAIN ABSCESS [None]
  - HEMIPLEGIA [None]
  - PYREXIA [None]
